FAERS Safety Report 7646330-1 (Version None)
Quarter: 2011Q3

REPORT INFORMATION
  Report Type: 
  Country: None (occurrence: None)
  Receive Date: 20110801
  Receipt Date: 20110720
  Transmission Date: 20111222
  Serious: Yes (Other)
  Sender: FDA-Public Use
  Company Number: BE-JNJFOC-20110707434

PATIENT
  Sex: Female
  Weight: 81 kg

DRUGS (5)
  1. STELARA [Suspect]
     Indication: ILL-DEFINED DISORDER
     Route: 058
     Dates: start: 20070822, end: 20080201
  2. ALDACTONE [Concomitant]
     Indication: HYPERTENSION
     Route: 048
  3. SIMVASTATIN [Concomitant]
  4. CYMBALTA [Concomitant]
     Indication: NEUROPATHY PERIPHERAL
  5. STELARA [Suspect]
     Route: 058
     Dates: start: 20091001

REACTIONS (1)
  - HYPERGAMMAGLOBULINAEMIA BENIGN MONOCLONAL [None]
